FAERS Safety Report 5598608-3 (Version None)
Quarter: 2008Q1

REPORT INFORMATION
  Report Type: 
  Country: None (occurrence: None)
  Receive Date: 20080122
  Receipt Date: 20070419
  Transmission Date: 20080703
  Serious: No
  Sender: FDA-Public Use
  Company Number: US-BAUSCH-2007BL001293

PATIENT
  Age: 10 Year
  Sex: Female

DRUGS (4)
  1. DESMOPRESSIN ACETATE [Suspect]
     Indication: ENURESIS
     Route: 045
     Dates: start: 20070501, end: 20070501
  2. DESMOPRESSIN ACETATE [Suspect]
     Route: 045
     Dates: start: 20070201, end: 20070201
  3. DESMOPRESSIN ACETATE [Suspect]
     Route: 045
     Dates: start: 20070301, end: 20070301
  4. DESMOPRESSIN ACETATE [Suspect]
     Route: 045
     Dates: start: 20070419, end: 20070501

REACTIONS (1)
  - DRUG INEFFECTIVE [None]
